FAERS Safety Report 6732258-8 (Version None)
Quarter: 2010Q2

REPORT INFORMATION
  Report Type: 
  Country: None (occurrence: None)
  Receive Date: 20100519
  Receipt Date: 20100513
  Transmission Date: 20101027
  Serious: Yes (Hospitalization)
  Sender: FDA-Public Use
  Company Number: B0631416A

PATIENT
  Sex: Male
  Weight: 20.8 kg

DRUGS (6)
  1. ABACAVIR [Suspect]
     Indication: HIV INFECTION
     Dosage: 1.5TABS PER DAY
     Dates: start: 20080919
  2. LAMIVUDINE [Suspect]
     Indication: HIV INFECTION
     Dosage: 1.5TAB PER DAY
     Dates: start: 20080919
  3. ZIDOVUDINE [Suspect]
     Indication: HIV INFECTION
     Dosage: 1TAB TWICE PER DAY
     Dates: start: 20080919
  4. COTRIM [Suspect]
     Indication: DRUG USE FOR UNKNOWN INDICATION
  5. MULTI-VITAMINS [Concomitant]
  6. STAVUDINE [Concomitant]

REACTIONS (15)
  - ANAEMIA [None]
  - ANISOCYTOSIS [None]
  - CARDIAC FAILURE [None]
  - CARDIAC MURMUR [None]
  - COUGH [None]
  - DRUG TOXICITY [None]
  - FATIGUE [None]
  - HEPATOMEGALY [None]
  - INFLUENZA [None]
  - MUCOSAL DISCOLOURATION [None]
  - SKIN PAPILLOMA [None]
  - SPLENOMEGALY [None]
  - TACHYCARDIA [None]
  - TINEA CAPITIS [None]
  - UPPER RESPIRATORY TRACT INFECTION [None]
